FAERS Safety Report 8227142-7 (Version None)
Quarter: 2012Q1

REPORT INFORMATION
  Report Type: 
  Country: None (occurrence: None)
  Receive Date: 20120322
  Receipt Date: 20120314
  Transmission Date: 20120608
  Serious: Yes (Hospitalization, Other)
  Sender: FDA-Public Use
  Company Number: US-JNJFOC-20120307594

PATIENT
  Age: 30 Year
  Sex: Female

DRUGS (1)
  1. ORTHO EVRA [Suspect]
     Indication: PRODUCT USED FOR UNKNOWN INDICATION
     Route: 062
     Dates: start: 20120225, end: 20120227

REACTIONS (3)
  - ABORTION SPONTANEOUS [None]
  - CONTRAINDICATION TO MEDICAL TREATMENT [None]
  - MATERNAL EXPOSURE DURING PREGNANCY [None]
